FAERS Safety Report 4489021-0 (Version None)
Quarter: 2004Q4

REPORT INFORMATION
  Report Type: 
  Country: None (occurrence: None)
  Receive Date: 20041029
  Receipt Date: 20041018
  Transmission Date: 20050328
  Serious: Yes (Other)
  Sender: FDA-Public Use
  Company Number: US-MERCK-0410USA02657

PATIENT
  Age: 69 Year
  Sex: Male

DRUGS (2)
  1. ZOCOR [Suspect]
     Indication: BLOOD CHOLESTEROL INCREASED
     Route: 048
     Dates: end: 19910101
  2. ZOCOR [Suspect]
     Indication: LIPIDS INCREASED
     Route: 048
     Dates: end: 19910101

REACTIONS (5)
  - COMA [None]
  - MUSCLE INJURY [None]
  - MYOPATHY [None]
  - NEUROPATHY PERIPHERAL [None]
  - POST POLIO SYNDROME [None]
